FAERS Safety Report 18999725 (Version 1)
Quarter: 2021Q1

REPORT INFORMATION
  Report Type: Spontaneous
  Country: CA (occurrence: CA)
  Receive Date: 20210311
  Receipt Date: 20210311
  Transmission Date: 20210420
  Serious: Yes (Other)
  Sender: FDA-Public Use
  Company Number: CA-PFIZER INC-2015330832

PATIENT
  Age: 56 Year
  Sex: Male

DRUGS (11)
  1. RALIVIA [Concomitant]
     Active Substance: TRAMADOL HYDROCHLORIDE
     Dosage: 200 MG, DAILY
  2. VENTOLIN HFA [Concomitant]
     Active Substance: ALBUTEROL SULFATE
     Dosage: UNK
  3. APO?AMLODIPINE [Concomitant]
     Active Substance: AMLODIPINE BESYLATE
     Indication: BLOOD PRESSURE ABNORMAL
     Dosage: 2 DF, 1X/DAY
  4. OMNARIS [Concomitant]
     Active Substance: CICLESONIDE
     Dosage: UNK
     Route: 045
  5. CELEBREX [Suspect]
     Active Substance: CELECOXIB
     Dosage: UNK
     Route: 048
  6. TRAMADOL HCL AND ACETAMINOPHEN [Concomitant]
     Active Substance: ACETAMINOPHEN\TRAMADOL
     Dosage: UNK
  7. XELJANZ [Suspect]
     Active Substance: TOFACITINIB CITRATE
     Indication: RHEUMATOID ARTHRITIS
     Dosage: 5 MG, 2X/DAY
     Route: 048
     Dates: start: 20141107
  8. APO?LANSOPRAZOLE [Concomitant]
     Active Substance: LANSOPRAZOLE
     Indication: DYSPEPSIA
     Dosage: 30 MG, 1X/DAY (1 PILL AT DINNER TIME)
  9. CELEBREX [Suspect]
     Active Substance: CELECOXIB
     Dosage: 200 MG, 1X/DAY
     Route: 048
  10. MOGADON [Concomitant]
     Active Substance: NITRAZEPAM
     Dosage: UNK
  11. COVERSYL PLUS [INDAPAMIDE;PERINDOPRIL ARGININE] [Concomitant]
     Active Substance: INDAPAMIDE\PERINDOPRIL ARGININE
     Indication: BLOOD PRESSURE ABNORMAL
     Dosage: 1 DF, DAILY

REACTIONS (4)
  - Arthralgia [Unknown]
  - Hypertension [Recovering/Resolving]
  - Rheumatoid arthritis [Unknown]
  - Condition aggravated [Unknown]
